FAERS Safety Report 4926113-3 (Version None)
Quarter: 2006Q1

REPORT INFORMATION
  Report Type: 
  Country: None (occurrence: None)
  Receive Date: 20060228
  Receipt Date: 20050819
  Transmission Date: 20060701
  Serious: No
  Sender: FDA-Public Use
  Company Number: US-GLAXOSMITHKLINE-A0570945A

PATIENT
  Age: 52 Year
  Sex: Male
  Weight: 163.6 kg

DRUGS (12)
  1. LAMICTAL [Suspect]
     Indication: DEPRESSION
     Dosage: 25MG PER DAY
     Route: 048
     Dates: start: 20050718, end: 20050726
  2. NIASPAN ER [Concomitant]
  3. ASPIRIN [Concomitant]
  4. HYDROCHLOROTHIAZIDE [Concomitant]
  5. LIPITOR [Concomitant]
  6. ZYRTEC [Concomitant]
  7. PRILOSEC [Concomitant]
  8. AVANDIA [Concomitant]
  9. AMARYL [Concomitant]
  10. REGLAN [Concomitant]
  11. LISINOPRIL [Concomitant]
  12. ALPRAZOLAM [Concomitant]

REACTIONS (2)
  - NYSTAGMUS [None]
  - VERTIGO [None]
